FAERS Safety Report 11062008 (Version 1)
Quarter: 2015Q2

REPORT INFORMATION
  Report Type: Spontaneous
  Country: FR (occurrence: FR)
  Receive Date: 20150424
  Receipt Date: 20150424
  Transmission Date: 20150821
  Serious: Yes (Life-Threatening)
  Sender: FDA-Public Use
  Company Number: FR-BAYER-2015-133589

PATIENT
  Age: 71 Year
  Sex: Female

DRUGS (11)
  1. ROCEPHINE [Concomitant]
     Active Substance: CEFTRIAXONE SODIUM
  2. IZILOX [Suspect]
     Active Substance: MOXIFLOXACIN HYDROCHLORIDE
     Indication: LYMPH NODE TUBERCULOSIS
     Dosage: 400 MG, QD
     Route: 048
     Dates: start: 20150121, end: 201502
  3. RIFABUTIN. [Suspect]
     Active Substance: RIFABUTIN
     Indication: LYMPH NODE TUBERCULOSIS
     Dosage: 150 MG, TID
     Route: 048
     Dates: start: 20150121
  4. GLIVEC [Concomitant]
     Active Substance: IMATINIB MESYLATE
     Dosage: UNK
  5. TAHOR [Concomitant]
     Active Substance: ATORVASTATIN CALCIUM
     Dosage: UNK
  6. TRIATEC [Concomitant]
     Active Substance: RAMIPRIL
     Dosage: UNK
  7. ROVAMYCINE [Concomitant]
     Active Substance: SPIRAMYCIN
  8. HUMALOG [Concomitant]
     Active Substance: INSULIN LISPRO
     Dosage: UNK
  9. METFORMINE [Concomitant]
     Active Substance: METFORMIN HYDROCHLORIDE
     Dosage: UNK
  10. PIRILENE [Suspect]
     Active Substance: PYRAZINAMIDE
     Indication: LYMPH NODE TUBERCULOSIS
     Dosage: 500 MG, QID
     Route: 048
     Dates: start: 20150121
  11. EZETROL [Concomitant]
     Active Substance: EZETIMIBE
     Dosage: UNK

REACTIONS (2)
  - Atrioventricular block [Recovered/Resolved with Sequelae]
  - Bradycardia [Recovered/Resolved with Sequelae]

NARRATIVE: CASE EVENT DATE: 201502
